FAERS Safety Report 10404320 (Version 3)
Quarter: 2014Q3

REPORT INFORMATION
  Report Type: Spontaneous
  Country: US (occurrence: None)
  Receive Date: 20140214
  Receipt Date: 20140815
  Transmission Date: 20150326
  Serious: No
  Sender: FDA-Public Use
  Company Number: A-NJ2014-93911

PATIENT
  Age: 58 Year
  Sex: Female

DRUGS (4)
  1. WARFARIN [Concomitant]
     Active Substance: WARFARIN
  2. VELETRI [Suspect]
     Active Substance: EPOPROSTENOL
     Indication: PULMONARY ARTERIAL HYPERTENSION
     Dosage: 34 NG/KG, PER MIN, IV DRIP
     Route: 041
     Dates: start: 20110729
  3. OPSUMIT [Suspect]
     Active Substance: MACITENTAN
     Indication: PULMONARY ARTERIAL HYPERTENSION
     Route: 048
     Dates: start: 20140109
  4. REVATIO (SILDENAFIL CITRATE) [Concomitant]

REACTIONS (9)
  - Catheter site swelling [None]
  - Feeling abnormal [None]
  - Dyspnoea [None]
  - Catheter site haemorrhage [None]
  - Catheter placement [None]
  - Device leakage [None]
  - Device damage [None]
  - Catheter site erythema [None]
  - Rash [None]

NARRATIVE: CASE EVENT DATE: 20140115
